FAERS Safety Report 13179478 (Version 1)
Quarter: 2017Q1

REPORT INFORMATION
  Report Type: Spontaneous
  Country: IT (occurrence: IT)
  Receive Date: 20170202
  Receipt Date: 20170202
  Transmission Date: 20170428
  Serious: Yes (Hospitalization, Other)
  Sender: FDA-Public Use
  Company Number: PHHY2016IT007901

PATIENT
  Age: 7 Year
  Sex: Female
  Weight: 23 kg

DRUGS (3)
  1. TEGRETOL [Suspect]
     Active Substance: CARBAMAZEPINE
     Indication: PARTIAL SEIZURES
     Dosage: 400 MG, QD
     Route: 048
     Dates: start: 20151224, end: 20160106
  2. TINSET [Concomitant]
     Active Substance: OXATOMIDE
     Indication: PRODUCT USED FOR UNKNOWN INDICATION
     Dosage: 11 POSOLOGIC UNIT/KG
     Route: 048
     Dates: start: 20160103, end: 20160106
  3. TINSET [Concomitant]
     Active Substance: OXATOMIDE
     Dosage: 11 DRP, UNK
     Route: 048
     Dates: start: 20160107

REACTIONS (5)
  - Retching [Unknown]
  - Urticaria [Unknown]
  - Pruritus [Unknown]
  - Rash erythematous [Unknown]
  - Pyrexia [Unknown]

NARRATIVE: CASE EVENT DATE: 20160106
